FAERS Safety Report 22035884 (Version 5)
Quarter: 2024Q3

REPORT INFORMATION
  Report Type: Report from Study
  Country: US (occurrence: US)
  Receive Date: 20230224
  Receipt Date: 20240731
  Transmission Date: 20241017
  Serious: Yes (Hospitalization, Disabling, Other)
  Sender: TAKEDA
  Company Number: US-TAKEDA-2023TUS020362

PATIENT
  Age: 84 Year
  Sex: Female

DRUGS (2)
  1. LANADELUMAB [Suspect]
     Active Substance: LANADELUMAB
     Indication: Prophylaxis
     Dosage: 300 MILLIGRAM, Q2WEEKS
     Route: 058
     Dates: start: 20230124
  2. LANADELUMAB [Suspect]
     Active Substance: LANADELUMAB
     Dosage: 300 MILLIGRAM, Q2WEEKS
     Route: 058

REACTIONS (5)
  - Tracheal stenosis [Unknown]
  - Haemoptysis [Unknown]
  - COVID-19 [Recovering/Resolving]
  - Heart rate decreased [Recovered/Resolved]
  - Cataract [Unknown]

NARRATIVE: CASE EVENT DATE: 20230909
